FAERS Safety Report 8573788-6 (Version None)
Quarter: 2012Q3

REPORT INFORMATION
  Report Type: 
  Country: None (occurrence: None)
  Receive Date: 20120806
  Receipt Date: 20120726
  Transmission Date: 20120928
  Serious: Yes (Hospitalization)
  Sender: FDA-Public Use
  Company Number: DE-GLAXOSMITHKLINE-D0076267A

PATIENT
  Sex: Male

DRUGS (12)
  1. NOVALGIN [Concomitant]
     Dosage: 40DROP FOUR TIMES PER DAY
     Route: 048
  2. MOVIPREP [Concomitant]
     Dosage: 1BAG PER DAY
     Route: 048
  3. LAXOBERAL [Concomitant]
     Dosage: 15DROP AT NIGHT
     Route: 048
  4. SIMVASTATIN [Concomitant]
     Dosage: 20MG PER DAY
     Route: 048
  5. ASPIRIN [Concomitant]
     Dosage: 100MG PER DAY
     Route: 048
  6. METOPROLOL TARTRATE [Concomitant]
     Dosage: 23.75MG PER DAY
     Route: 048
  7. CARBAMAZEPINE [Concomitant]
     Dosage: 100MG THREE TIMES PER DAY
     Route: 048
  8. ALBUTEROL SULATE [Concomitant]
     Route: 055
  9. PANTOPRAZOLE [Concomitant]
     Dosage: 20MG PER DAY
     Route: 048
  10. CAPTOHEXAL [Concomitant]
     Dosage: 25MG TWICE PER DAY
     Route: 048
  11. IBANDRONATE SODIUM [Concomitant]
     Dosage: 6MG FOUR TIMES PER WEEK
     Route: 042
  12. VOTRIENT [Suspect]
     Indication: METASTATIC RENAL CELL CARCINOMA
     Dosage: 800MG PER DAY
     Route: 048
     Dates: start: 20120522, end: 20120530

REACTIONS (7)
  - GAIT DISTURBANCE [None]
  - NAUSEA [None]
  - DRUG INTERACTION [None]
  - BRAIN STEM ISCHAEMIA [None]
  - BRAIN STEM INFARCTION [None]
  - VERTIGO [None]
  - VOMITING [None]
